FAERS Safety Report 7274447-2 (Version None)
Quarter: 2011Q1

REPORT INFORMATION
  Report Type: 
  Country: None (occurrence: None)
  Receive Date: 20110204
  Receipt Date: 20110201
  Transmission Date: 20110831
  Serious: No
  Sender: FDA-Public Use
  Company Number: US-PFIZER INC-2011023565

PATIENT
  Sex: Male
  Weight: 108.8 kg

DRUGS (3)
  1. LISINOPRIL [Concomitant]
     Indication: HYPERTENSION
     Dosage: UNK
  2. NORVASC [Suspect]
     Dosage: 2.5 MG, DAILY
  3. NORVASC [Suspect]
     Indication: HYPERTENSION
     Dosage: 5 MG, DAILY
     Route: 048
     Dates: start: 20091201

REACTIONS (4)
  - PARAESTHESIA [None]
  - NEUROPATHY PERIPHERAL [None]
  - DIZZINESS [None]
  - FORMICATION [None]
